FAERS Safety Report 8150819-9 (Version None)
Quarter: 2012Q1

REPORT INFORMATION
  Report Type: 
  Country: None (occurrence: None)
  Receive Date: 20120220
  Receipt Date: 20120208
  Transmission Date: 20120608
  Serious: Yes (Other)
  Sender: FDA-Public Use
  Company Number: FR-PFIZER INC-2012041543

PATIENT
  Age: 74 Year
  Sex: Male

DRUGS (2)
  1. SUTENT [Suspect]
     Indication: RENAL CANCER METASTATIC
     Dosage: 50 MG, 1X/DAY, 4 WEEKS OUT OF 6
     Dates: start: 20110701
  2. SUTENT [Suspect]
     Dosage: 37.5 MG, 1X/DAY, 4 WEEKS OUT OF 6

REACTIONS (1)
  - POLYCYTHAEMIA [None]
